FAERS Safety Report 18056469 (Version 2)
Quarter: 2020Q4

REPORT INFORMATION
  Report Type: Spontaneous
  Country: US (occurrence: US)
  Receive Date: 20200722
  Receipt Date: 20201218
  Transmission Date: 20210113
  Serious: Yes (Death, Disabling, Other)
  Sender: FDA-Public Use
  Company Number: US-PURDUE-USA-2020-0158788

PATIENT
  Sex: Male

DRUGS (2)
  1. OXYCONTIN [Suspect]
     Active Substance: OXYCODONE HYDROCHLORIDE
     Indication: FIBROMYALGIA
     Dosage: UNK
     Route: 048
  2. DILAUDID [Suspect]
     Active Substance: HYDROMORPHONE HYDROCHLORIDE
     Indication: PRODUCT USED FOR UNKNOWN INDICATION
     Dosage: UNK
     Route: 048

REACTIONS (8)
  - Anxiety [Unknown]
  - Imprisonment [Not Recovered/Not Resolved]
  - Hypertension [Unknown]
  - Learning disability [Unknown]
  - Overdose [Fatal]
  - Dependence [Not Recovered/Not Resolved]
  - Impaired reasoning [Unknown]
  - Pain [Unknown]

NARRATIVE: CASE EVENT DATE: 20200916
